FAERS Safety Report 7730756-1 (Version None)
Quarter: 2011Q3

REPORT INFORMATION
  Report Type: 
  Country: None (occurrence: None)
  Receive Date: 20110906
  Receipt Date: 20110829
  Transmission Date: 20111222
  Serious: Yes (Hospitalization)
  Sender: FDA-Public Use
  Company Number: JP-GLAXOSMITHKLINE-B0744042A

PATIENT
  Sex: Female

DRUGS (4)
  1. TYKERB [Suspect]
     Indication: BREAST CANCER
     Dosage: 1250MG PER DAY
     Route: 048
     Dates: start: 20100927, end: 20110802
  2. ZITHROMAX [Concomitant]
     Route: 048
  3. SELBEX [Concomitant]
     Route: 048
  4. XELODA [Suspect]
     Dosage: 1500MG PER DAY
     Route: 048
     Dates: start: 20100801

REACTIONS (1)
  - LIVER DISORDER [None]
